FAERS Safety Report 16614804 (Version 1)
Quarter: 2019Q3

REPORT INFORMATION
  Report Type: Spontaneous
  Country: HU (occurrence: HU)
  Receive Date: 20190723
  Receipt Date: 20190723
  Transmission Date: 20191004
  Serious: Yes (Hospitalization)
  Sender: FDA-Public Use
  Company Number: HU-SUN PHARMACEUTICAL INDUSTRIES LTD-2019R1-202894

PATIENT
  Age: 84 Year
  Sex: Female

DRUGS (1)
  1. PROPAFENONE. [Suspect]
     Active Substance: PROPAFENONE
     Indication: SUPRAVENTRICULAR TACHYARRHYTHMIA
     Dosage: 150 MILLIGRAM, TID
     Route: 065

REACTIONS (5)
  - Food interaction [Unknown]
  - Toxicity to various agents [Unknown]
  - Tachycardia [Recovered/Resolved]
  - Electrocardiogram QRS complex prolonged [Recovering/Resolving]
  - Palpitations [Recovered/Resolved]
